FAERS Safety Report 5923905-9 (Version None)
Quarter: 2008Q4

REPORT INFORMATION
  Report Type: 
  Country: None (occurrence: None)
  Receive Date: 20081020
  Receipt Date: 20081009
  Transmission Date: 20090506
  Serious: Yes (Other)
  Sender: FDA-Public Use
  Company Number: GB-ROCHE-590908

PATIENT
  Age: 50 Year
  Sex: Male

DRUGS (1)
  1. ROACCUTANE [Suspect]
     Route: 065
     Dates: start: 20070101

REACTIONS (5)
  - BLOOD ALKALINE PHOSPHATASE INCREASED [None]
  - MULTIPLE MYELOMA [None]
  - MUSCULOSKELETAL CHEST PAIN [None]
  - RED BLOOD CELL SEDIMENTATION RATE INCREASED [None]
  - SPINAL DISORDER [None]
